FAERS Safety Report 17169321 (Version 1)
Quarter: 2019Q4

REPORT INFORMATION
  Report Type: Report from Study
  Country: US (occurrence: US)
  Receive Date: 20191218
  Receipt Date: 20191218
  Transmission Date: 20200122
  Serious: Yes (Other)
  Sender: FDA-Public Use
  Company Number: US-ROCHE-2495432

PATIENT
  Sex: Male

DRUGS (1)
  1. ESBRIET [Suspect]
     Active Substance: PIRFENIDONE
     Indication: INTERSTITIAL LUNG DISEASE
     Dosage: TAKE 1 TABLET BY MOUTH 3 TIMES A DAY
     Route: 048

REACTIONS (3)
  - Diverticulitis [Unknown]
  - Colitis [Unknown]
  - Malaise [Unknown]
